FAERS Safety Report 17803011 (Version 1)
Quarter: 2020Q2

REPORT INFORMATION
  Report Type: Report from Study
  Country: US (occurrence: US)
  Receive Date: 20200519
  Receipt Date: 20200519
  Transmission Date: 20200714
  Serious: Yes (Death, Other)
  Sender: FDA-Public Use
  Company Number: US-EMD SERONO-9163537

PATIENT
  Age: 80 Year
  Sex: Female

DRUGS (1)
  1. REBIF [Suspect]
     Active Substance: INTERFERON BETA-1A
     Indication: PRODUCT USED FOR UNKNOWN INDICATION
     Route: 058
     Dates: start: 20060605, end: 201909

REACTIONS (2)
  - Cerebrovascular accident [Unknown]
  - Chronic hepatic failure [Fatal]

NARRATIVE: CASE EVENT DATE: 201906
